FAERS Safety Report 5370192-9 (Version None)
Quarter: 2007Q2

REPORT INFORMATION
  Report Type: 
  Country: None (occurrence: None)
  Receive Date: 20070614
  Receipt Date: 20070425
  Transmission Date: 20071010
  Serious: No
  Sender: FDA-Public Use
  Company Number: BDI-009457

PATIENT
  Age: 32 Year
  Sex: Male
  Weight: 199.1 kg

DRUGS (4)
  1. MULTIHANCE [Suspect]
     Indication: NUCLEAR MAGNETIC RESONANCE IMAGING
     Dosage: 12 ML ONCE IV
     Route: 042
     Dates: start: 20070424, end: 20070424
  2. MULTIHANCE [Suspect]
     Indication: SPINAL LAMINECTOMY
     Dosage: 12 ML ONCE IV
     Route: 042
     Dates: start: 20070424, end: 20070424
  3. MULTIHANCE [Suspect]
     Indication: NUCLEAR MAGNETIC RESONANCE IMAGING
     Dosage: IV
     Route: 042
     Dates: start: 20070424, end: 20070424
  4. MULTIHANCE [Suspect]
     Indication: SPINAL LAMINECTOMY
     Dosage: IV
     Route: 042
     Dates: start: 20070424, end: 20070424

REACTIONS (1)
  - HYPERSENSITIVITY [None]
